FAERS Safety Report 9950200 (Version 1)
Quarter: 2014Q1

REPORT INFORMATION
  Report Type: Report from Study
  Country: US (occurrence: US)
  Receive Date: 20140304
  Receipt Date: 20140304
  Transmission Date: 20141002
  Serious: No
  Sender: FDA-Public Use
  Company Number: US-ABBVIE-13P-163-1069568-00

PATIENT
  Age: 61 Year
  Sex: Female

DRUGS (12)
  1. HUMIRA [Suspect]
     Indication: RHEUMATOID ARTHRITIS
     Dates: start: 20121011
  2. ASTELIN 137MCG MIXED WITH FLUNISOLIDE 0.025% SPRAY [Concomitant]
     Indication: PRODUCT USED FOR UNKNOWN INDICATION
     Dosage: EACH NOSTRIL
  3. GLUCOSAMINE CHONDROITIN DOUBLE STRENGTH [Concomitant]
     Indication: ARTHROPATHY
  4. CALCIUM CARBONATE W/VITAMIN D NOS [Concomitant]
     Indication: PRODUCT USED FOR UNKNOWN INDICATION
  5. CETIRIZINE [Concomitant]
     Indication: HYPERSENSITIVITY
  6. FOLIC ACID [Concomitant]
     Indication: PRODUCT USED FOR UNKNOWN INDICATION
  7. ZOLPIDEM [Concomitant]
     Indication: PRODUCT USED FOR UNKNOWN INDICATION
     Dosage: 5-10MG AT BEDTIME
  8. PAROXETINE [Concomitant]
     Indication: DEPRESSION
  9. MULTIVITAMIN [Concomitant]
     Indication: PRODUCT USED FOR UNKNOWN INDICATION
  10. PRILOSEC [Concomitant]
     Indication: PRODUCT USED FOR UNKNOWN INDICATION
  11. PREDNISONE [Concomitant]
     Indication: PRODUCT USED FOR UNKNOWN INDICATION
  12. METHOTREXATE [Concomitant]
     Indication: PRODUCT USED FOR UNKNOWN INDICATION
     Dosage: WEEKLY

REACTIONS (2)
  - Syncope [Recovered/Resolved]
  - Dizziness [Recovered/Resolved]
